FAERS Safety Report 9045146 (Version 1)
Quarter: 2013Q1

REPORT INFORMATION
  Report Type: Report from Study
  Country: US (occurrence: US)
  Receive Date: 20130130
  Receipt Date: 20130130
  Transmission Date: 20140127
  Serious: No
  Sender: FDA-Public Use
  Company Number: US-ABBOTT-12P-163-0969925-00

PATIENT
  Age: 48 None
  Sex: Female
  Weight: 80.81 kg

DRUGS (4)
  1. HUMIRA 40 MG/0.8 ML PEN [Suspect]
     Indication: RHEUMATOID ARTHRITIS
     Dates: start: 20120806
  2. METHOTREXATE [Concomitant]
     Indication: PRODUCT USED FOR UNKNOWN INDICATION
  3. UNKNOWN HAIR LOSS MEDICATION [Concomitant]
     Indication: ALOPECIA
  4. CELEXIA [Concomitant]
     Indication: PAIN

REACTIONS (3)
  - Oropharyngeal pain [Recovering/Resolving]
  - Increased upper airway secretion [Recovering/Resolving]
  - Fatigue [Not Recovered/Not Resolved]
